FAERS Safety Report 8826199 (Version 2)
Quarter: 2012Q4

REPORT INFORMATION
  Report Type: 
  Country: US (occurrence: US)
  Receive Date: 20121008
  Receipt Date: 20121217
  Transmission Date: 20130627
  Serious: Yes (Hospitalization)
  Sender: FDA-Public Use
  Company Number: US-ELI_LILLY_AND_COMPANY-US201208006135

PATIENT
  Age: 29 Year
  Sex: Male

DRUGS (2)
  1. ZYPREXA RELPREVV [Suspect]
     Indication: SCHIZOAFFECTIVE DISORDER
     Dosage: 300 mg, 2/M
     Route: 030
     Dates: start: 20120801
  2. ZYPREXA RELPREVV [Suspect]
     Dosage: 300 mg, 2/M
     Route: 030
     Dates: start: 20120815

REACTIONS (3)
  - Hospitalisation [Recovered/Resolved]
  - Insomnia [Recovered/Resolved]
  - Stress [Recovered/Resolved]
